FAERS Safety Report 10101158 (Version 1)
Quarter: 2014Q2

REPORT INFORMATION
  Report Type: Spontaneous
  Country: NO (occurrence: NO)
  Receive Date: 20140424
  Receipt Date: 20140424
  Transmission Date: 20141212
  Serious: Yes (Death)
  Sender: FDA-Public Use
  Company Number: NO-ALEXION PHARMACEUTICALS INC.-A201401337

PATIENT
  Sex: 0

DRUGS (2)
  1. SOLIRIS 300MG [Suspect]
     Indication: COLD AGGLUTININS
     Dosage: 600 MG, SINGLE
     Route: 042
     Dates: start: 20121005, end: 20121005
  2. SOLIRIS 300MG [Suspect]
     Indication: OFF LABEL USE
     Dosage: 900 MG, SINGLE
     Route: 042
     Dates: start: 20121011, end: 20121011

REACTIONS (2)
  - Encephalitis [Fatal]
  - Off label use [Unknown]
